FAERS Safety Report 26085076 (Version 1)
Quarter: 2025Q4

REPORT INFORMATION
  Report Type: Spontaneous
  Country: JP (occurrence: JP)
  Receive Date: 20251125
  Receipt Date: 20251125
  Transmission Date: 20260117
  Serious: Yes (Other)
  Sender: SANOFI AVENTIS
  Company Number: JP-SAKK-2025SA346325AA

PATIENT
  Age: 53 Year
  Sex: Female

DRUGS (1)
  1. DUPIXENT [Suspect]
     Active Substance: DUPILUMAB
     Indication: Chronic eosinophilic rhinosinusitis
     Dosage: UNK
     Route: 058
     Dates: start: 20250924, end: 20251020

REACTIONS (1)
  - Eosinophilic pneumonia [Unknown]

NARRATIVE: CASE EVENT DATE: 20251020
